FAERS Safety Report 18383329 (Version 1)
Quarter: 2020Q4

REPORT INFORMATION
  Report Type: Spontaneous
  Country: US (occurrence: US)
  Receive Date: 20201014
  Receipt Date: 20201014
  Transmission Date: 20210114
  Serious: No
  Sender: FDA-Public Use
  Company Number: US-BAYER-2020-220066

PATIENT
  Age: 41 Year
  Sex: Female

DRUGS (1)
  1. MIRENA [Suspect]
     Active Substance: LEVONORGESTREL
     Indication: MENSTRUAL CYCLE MANAGEMENT
     Dosage: 20 ?G PER DAY CONTINUOUSLY
     Route: 015
     Dates: start: 201909, end: 202003

REACTIONS (4)
  - Off label use of device [None]
  - Depression [Recovering/Resolving]
  - Vaginal haemorrhage [Recovering/Resolving]
  - Device use issue [None]

NARRATIVE: CASE EVENT DATE: 202003
